FAERS Safety Report 20607230 (Version 1)
Quarter: 2022Q1

REPORT INFORMATION
  Report Type: Spontaneous
  Country: US (occurrence: US)
  Receive Date: 20220317
  Receipt Date: 20220317
  Transmission Date: 20220424
  Serious: No
  Sender: FDA-Public Use
  Company Number: US-MYLANLABS-2022M1014594

PATIENT
  Sex: Female
  Weight: 55.34 kg

DRUGS (1)
  1. WIXELA INHUB [Suspect]
     Active Substance: FLUTICASONE PROPIONATE\SALMETEROL XINAFOATE
     Indication: Asthma
     Dosage: 500/50, MICROGRAM
     Route: 055

REACTIONS (4)
  - Device delivery system issue [Unknown]
  - Device difficult to use [Unknown]
  - Device malfunction [Unknown]
  - Product dose omission issue [Unknown]
